FAERS Safety Report 23309421 (Version 1)
Quarter: 2023Q4

REPORT INFORMATION
  Report Type: Report from Study
  Country: US (occurrence: US)
  Receive Date: 20231218
  Receipt Date: 20231218
  Transmission Date: 20240110
  Serious: Yes (Life-Threatening, Hospitalization, Other)
  Sender: FDA-Public Use
  Company Number: US-002147023-NVSC2023US128455

PATIENT
  Age: 27 Year
  Sex: Male
  Weight: 134.1 kg

DRUGS (66)
  1. CYTARABINE [Suspect]
     Active Substance: CYTARABINE
     Indication: Acute myeloid leukaemia
     Dosage: 2 G/M2
     Route: 042
     Dates: start: 20230224
  2. CYTARABINE [Suspect]
     Active Substance: CYTARABINE
     Indication: Myelodysplastic syndrome
  3. FLUDARABINE PHOSPHATE [Suspect]
     Active Substance: FLUDARABINE PHOSPHATE
     Indication: Acute myeloid leukaemia
     Dosage: 30 MG/M2
     Route: 042
     Dates: start: 20230223
  4. FLUDARABINE PHOSPHATE [Suspect]
     Active Substance: FLUDARABINE PHOSPHATE
     Indication: Myelodysplastic syndrome
  5. ACETAMINOPHEN [Concomitant]
     Active Substance: ACETAMINOPHEN
     Indication: Febrile neutropenia
     Dosage: UNK
     Route: 048
     Dates: start: 20230321
  6. ACETAMINOPHEN [Concomitant]
     Active Substance: ACETAMINOPHEN
     Indication: Pyrexia
     Dosage: UNK
     Route: 048
     Dates: start: 20231118, end: 20231119
  7. ACETAMINOPHEN [Concomitant]
     Active Substance: ACETAMINOPHEN
     Dosage: UNK
     Route: 048
     Dates: start: 20231120, end: 20231120
  8. ACETAMINOPHEN [Concomitant]
     Active Substance: ACETAMINOPHEN
     Dosage: UNK
     Route: 048
     Dates: start: 20231122, end: 20231122
  9. ACETAMINOPHEN [Concomitant]
     Active Substance: ACETAMINOPHEN
     Dosage: UNK
     Route: 048
     Dates: start: 20231124, end: 20231124
  10. ACETAMINOPHEN [Concomitant]
     Active Substance: ACETAMINOPHEN
     Dosage: UNK
     Route: 048
     Dates: start: 20231201, end: 20231201
  11. ACETAMINOPHEN [Concomitant]
     Active Substance: ACETAMINOPHEN
     Dosage: UNK
     Route: 048
     Dates: start: 20231202, end: 20231202
  12. ACYCLOVIR [Concomitant]
     Active Substance: ACYCLOVIR
     Indication: Antiviral prophylaxis
     Dosage: 400 MG, BID
     Route: 048
     Dates: start: 20230123
  13. ACYCLOVIR [Concomitant]
     Active Substance: ACYCLOVIR
     Dosage: UNK
     Route: 048
     Dates: start: 20230814
  14. ALLOPURINOL [Concomitant]
     Active Substance: ALLOPURINOL
     Indication: Hyperuricaemia
     Dosage: 300 MG, BID
     Route: 048
     Dates: start: 20230223
  15. BACLOFEN [Concomitant]
     Active Substance: BACLOFEN
     Indication: Hiccups
     Dosage: 5 MG, PRN
     Route: 048
     Dates: start: 202212
  16. CEFEPIME [Concomitant]
     Active Substance: CEFEPIME HYDROCHLORIDE
     Indication: Pyrexia
     Dosage: UNK
     Route: 048
     Dates: start: 20231118, end: 20231119
  17. CEFEPIME [Concomitant]
     Active Substance: CEFEPIME HYDROCHLORIDE
     Dosage: UNK
     Route: 048
     Dates: start: 20231201, end: 20231201
  18. CETIRIZINE [Concomitant]
     Active Substance: CETIRIZINE HYDROCHLORIDE
     Indication: Seasonal allergy
     Dosage: 10 MG, QD
     Route: 048
     Dates: start: 202212
  19. CYCLOBENZAPRINE [Concomitant]
     Active Substance: CYCLOBENZAPRINE
     Indication: Product used for unknown indication
     Dosage: UNK
     Route: 048
     Dates: start: 20230823
  20. DECADRON [Concomitant]
     Active Substance: DEXAMETHASONE
     Indication: Chemotherapy side effect prophylaxis
     Dosage: 12 MG, QD
     Route: 048
     Dates: start: 20230223, end: 20230223
  21. DECADRON [Concomitant]
     Active Substance: DEXAMETHASONE
     Indication: Prophylaxis of nausea and vomiting
  22. DEXAMETHASONE [Concomitant]
     Active Substance: DEXAMETHASONE
     Indication: Prophylaxis
     Dosage: UNK
     Route: 048
     Dates: start: 2023
  23. DIPHENHYDRAMINE [Concomitant]
     Active Substance: DIPHENHYDRAMINE
     Indication: Prophylaxis
     Dosage: 25 MG, ONCE/SINGLE
     Route: 048
     Dates: start: 20230306, end: 20230306
  24. DIPHENHYDRAMINE [Concomitant]
     Active Substance: DIPHENHYDRAMINE
     Dosage: 25 MG, ONCE/SINGLE
     Route: 048
     Dates: start: 20230316, end: 20230316
  25. DIPHENHYDRAMINE [Concomitant]
     Active Substance: DIPHENHYDRAMINE
     Dosage: UNK
     Route: 048
     Dates: start: 20231124, end: 20231124
  26. DIPHENHYDRAMINE [Concomitant]
     Active Substance: DIPHENHYDRAMINE
     Dosage: UNK
     Route: 048
     Dates: start: 20231201, end: 20231201
  27. DIPHENHYDRAMINE [Concomitant]
     Active Substance: DIPHENHYDRAMINE
     Dosage: UNK
     Route: 048
     Dates: start: 20231202, end: 20231202
  28. DOCUSATE SODIUM [Concomitant]
     Active Substance: DOCUSATE SODIUM
     Indication: Constipation
     Dosage: 100 MG, PRN
     Route: 048
     Dates: start: 202207
  29. EMEND [Concomitant]
     Active Substance: APREPITANT
     Indication: Prophylaxis
     Dosage: UNK
     Route: 042
     Dates: start: 20231117, end: 20231122
  30. FAMOTIDINE [Concomitant]
     Active Substance: FAMOTIDINE
     Indication: Prophylaxis
     Dosage: UNK
     Route: 048
     Dates: start: 20230223
  31. FLONASE [Concomitant]
     Active Substance: FLUTICASONE PROPIONATE
     Indication: Seasonal allergy
     Dosage: 50 MCG, PRN
     Route: 045
     Dates: start: 2021
  32. FLUCONAZOLE [Concomitant]
     Active Substance: FLUCONAZOLE
     Indication: Antifungal prophylaxis
     Dosage: 400 MG, QD
     Route: 048
     Dates: start: 202206, end: 20230303
  33. GABAPENTIN [Concomitant]
     Active Substance: GABAPENTIN
     Indication: Arthralgia
     Dosage: UNK
     Route: 048
     Dates: start: 20231016
  34. HEPARIN [Concomitant]
     Active Substance: HEPARIN SODIUM
     Indication: Prophylaxis
     Dosage: UNK
     Route: 042
     Dates: start: 20231125
  35. IMODIUM [Concomitant]
     Active Substance: LOPERAMIDE HYDROCHLORIDE
     Indication: Product used for unknown indication
     Dosage: UNK
     Route: 048
     Dates: start: 20231118
  36. LEVOFLOXACIN [Concomitant]
     Active Substance: LEVOFLOXACIN
     Indication: Antibiotic prophylaxis
     Dosage: 500 MG, QD
     Route: 048
     Dates: start: 202206
  37. LEVOFLOXACIN [Concomitant]
     Active Substance: LEVOFLOXACIN
     Dosage: UNK
     Route: 048
     Dates: start: 20231118
  38. LORAZEPAM [Concomitant]
     Active Substance: LORAZEPAM
     Indication: Product used for unknown indication
     Dosage: UNK
     Route: 042
     Dates: start: 20231118, end: 20231119
  39. MAGNESIUM SULFATE [Concomitant]
     Active Substance: MAGNESIUM SULFATE\MAGNESIUM SULFATE HEPTAHYDRATE
     Indication: Prophylaxis
     Dosage: UNK
     Route: 042
     Dates: start: 20231202
  40. MEROPENEM [Concomitant]
     Active Substance: MEROPENEM
     Indication: Pyrexia
     Dosage: UNK
     Route: 065
     Dates: start: 20231119
  41. MICAFUNGIN SODIUM [Concomitant]
     Active Substance: MICAFUNGIN SODIUM
     Indication: Prophylaxis
     Dosage: UNK
     Route: 042
     Dates: start: 20231118
  42. MIRTAZAPINE [Concomitant]
     Active Substance: MIRTAZAPINE
     Indication: Depression
     Dosage: UNK
     Route: 048
     Dates: start: 20230301, end: 20230911
  43. MORPHINE [Concomitant]
     Active Substance: MORPHINE
     Indication: Cancer pain
     Dosage: 15 MG, PRN
     Route: 048
     Dates: start: 202206
  44. NORCO [Concomitant]
     Active Substance: ACETAMINOPHEN\HYDROCODONE BITARTRATE
     Indication: Cancer pain
     Dosage: 1 DOSAGE FORM, PRN (10-325)
     Route: 048
     Dates: start: 202210
  45. ONDANSETRON [Concomitant]
     Active Substance: ONDANSETRON
     Dosage: 8 MG, 1 TOTAL
     Route: 042
     Dates: start: 20230222, end: 20230222
  46. ONDANSETRON [Concomitant]
     Active Substance: ONDANSETRON
     Indication: Nausea
     Dosage: 8 MG, PRN
     Route: 060
     Dates: start: 202206
  47. PLATELETS [Concomitant]
     Active Substance: HUMAN PLATELET, ALLOGENIC
     Indication: Acute myeloid leukaemia
     Dosage: 1 UNIT, ONCE/SINGLE
     Route: 042
     Dates: start: 20230217, end: 20230217
  48. PLATELETS [Concomitant]
     Active Substance: HUMAN PLATELET, ALLOGENIC
     Dosage: 1 UNIT, ONCE/SINGLE
     Route: 042
     Dates: start: 20230222, end: 20230222
  49. PLATELETS [Concomitant]
     Active Substance: HUMAN PLATELET, ALLOGENIC
     Dosage: 1 UNIT, ONCE/SINGLE
     Route: 042
     Dates: start: 20230306, end: 20230306
  50. PLATELETS [Concomitant]
     Active Substance: HUMAN PLATELET, ALLOGENIC
     Dosage: 1 UNIT, ONCE/SINGLE
     Route: 042
     Dates: start: 20230309, end: 20230309
  51. PLATELETS [Concomitant]
     Active Substance: HUMAN PLATELET, ALLOGENIC
     Dosage: 1 UNIT, ONCE/SINGLE
     Route: 042
     Dates: start: 20230314, end: 20230314
  52. PLATELETS [Concomitant]
     Active Substance: HUMAN PLATELET, ALLOGENIC
     Dosage: 1 UNIT, ONCE/SINGLE
     Route: 042
     Dates: start: 20230317, end: 20230317
  53. POTASSIUM CHLORIDE [Concomitant]
     Active Substance: POTASSIUM CHLORIDE
     Indication: Hypokalaemia
     Dosage: UNK
     Route: 048
     Dates: start: 20230412
  54. POTASSIUM CHLORIDE [Concomitant]
     Active Substance: POTASSIUM CHLORIDE
     Dosage: UNK
     Route: 048
     Dates: start: 20230413
  55. POTASSIUM CHLORIDE [Concomitant]
     Active Substance: POTASSIUM CHLORIDE
     Dosage: UNK
     Route: 048
     Dates: start: 20231118, end: 20231202
  56. HUMAN RED BLOOD CELL [Concomitant]
     Active Substance: HUMAN RED BLOOD CELL
     Indication: Acute myeloid leukaemia
     Dosage: 1 UNIT, ONCE/SINGLE
     Route: 042
     Dates: start: 20230306, end: 20230306
  57. HUMAN RED BLOOD CELL [Concomitant]
     Active Substance: HUMAN RED BLOOD CELL
     Dosage: 1 UNIT, ONCE/SINGLE
     Route: 042
     Dates: start: 20230310, end: 20230310
  58. HUMAN RED BLOOD CELL [Concomitant]
     Active Substance: HUMAN RED BLOOD CELL
     Dosage: 1 UNIT, ONCE/SINGLE
     Route: 042
     Dates: start: 20230314, end: 20230314
  59. HUMAN RED BLOOD CELL [Concomitant]
     Active Substance: HUMAN RED BLOOD CELL
     Dosage: 1 UNIT, ONCE/SINGLE
     Route: 042
     Dates: start: 20230315, end: 20230315
  60. HUMAN RED BLOOD CELL [Concomitant]
     Active Substance: HUMAN RED BLOOD CELL
     Dosage: 1 UNIT, ONCE/SINGLE
     Route: 042
     Dates: start: 20230316, end: 20230316
  61. SENOSIDE [Concomitant]
     Indication: Constipation
     Dosage: 8.6 MG, PRN
     Route: 048
     Dates: start: 202211
  62. SODIUM CHLORIDE [Concomitant]
     Active Substance: SODIUM CHLORIDE
     Dosage: 1000 ML, ONCE/SINGLE
     Route: 042
     Dates: start: 20230316, end: 20230316
  63. SODIUM CHLORIDE [Concomitant]
     Active Substance: SODIUM CHLORIDE
     Indication: Product used for unknown indication
     Dosage: UNK, ONCE/SINGLE
     Route: 042
     Dates: start: 20230309, end: 20230309
  64. TAMSULOSIN [Concomitant]
     Active Substance: TAMSULOSIN
     Indication: Urinary retention
     Dosage: 0.4 MG, PRN
     Route: 048
     Dates: start: 202206
  65. TOCILIZUMAB [Concomitant]
     Active Substance: TOCILIZUMAB
     Indication: Pyrexia
     Dosage: UNK
     Route: 042
     Dates: start: 20231201, end: 20231201
  66. TRIAMCINOLONE [Concomitant]
     Active Substance: TRIAMCINOLONE
     Indication: Product used for unknown indication
     Dosage: UNK
     Route: 061
     Dates: start: 20231005

REACTIONS (3)
  - Pneumonia [Not Recovered/Not Resolved]
  - Febrile neutropenia [Recovered/Resolved]
  - Febrile neutropenia [Recovered/Resolved]

NARRATIVE: CASE EVENT DATE: 20230309
